FAERS Safety Report 6327056-3 (Version None)
Quarter: 2009Q3

REPORT INFORMATION
  Report Type: 
  Country: None (occurrence: None)
  Receive Date: 20090818
  Receipt Date: 20090608
  Transmission Date: 20100115
  Serious: No
  Sender: FDA-Public Use
  Company Number: WAES 0906USA01411

PATIENT
  Age: 76 Year
  Sex: Female

DRUGS (9)
  1. JANUVIA [Suspect]
     Indication: DIABETES MELLITUS
     Dosage: 100 MG/PRN/PO : 50 MG/PRN/PO
     Route: 048
     Dates: start: 20090201
  2. ACIPHEX [Concomitant]
  3. CADUET [Concomitant]
  4. COREG [Concomitant]
  5. DIOVAN [Concomitant]
  6. GLUCOVANCE [Concomitant]
  7. GLYSET [Concomitant]
  8. TRENTAL [Concomitant]
  9. METFORMIN HCL [Concomitant]

REACTIONS (4)
  - BLOOD GLUCOSE DECREASED [None]
  - BLOOD GLUCOSE INCREASED [None]
  - DRUG INEFFECTIVE [None]
  - INAPPROPRIATE SCHEDULE OF DRUG ADMINISTRATION [None]
